FAERS Safety Report 15332895 (Version 1)
Quarter: 2018Q3

REPORT INFORMATION
  Report Type: Spontaneous
  Country: US (occurrence: US)
  Receive Date: 20180830
  Receipt Date: 20180830
  Transmission Date: 20181010
  Serious: No
  Sender: FDA-Public Use
  Company Number: US-PRINSTON PHARMACEUTICAL INC.-2018PRN00776

PATIENT
  Age: 73 Year
  Sex: Female
  Weight: 92.97 kg

DRUGS (5)
  1. UNSPECIFED BLOOD PRESSURE MEDICATION [Concomitant]
  2. UNSPECIFIED ANTI?INFLAMMATORY [Concomitant]
     Active Substance: UNSPECIFIED INGREDIENT
  3. DULOXETINE. [Suspect]
     Active Substance: DULOXETINE
     Indication: PAIN IN EXTREMITY
     Dosage: 30 MG, 1X/DAY IN THE MORNING
     Route: 048
     Dates: start: 201806, end: 201807
  4. LOSARTAN/HCTZ [Concomitant]
     Active Substance: HYDROCHLOROTHIAZIDE\LOSARTAN
  5. DULOXETINE. [Suspect]
     Active Substance: DULOXETINE
     Indication: PAIN IN EXTREMITY
     Dosage: 60 MG, 1X/DAY IN THE MORNING
     Route: 048
     Dates: start: 201807

REACTIONS (1)
  - Liver function test increased [Not Recovered/Not Resolved]

NARRATIVE: CASE EVENT DATE: 201806
